FAERS Safety Report 6937015-5 (Version None)
Quarter: 2010Q3

REPORT INFORMATION
  Report Type: 
  Country: None (occurrence: None)
  Receive Date: 20100823
  Receipt Date: 20100818
  Transmission Date: 20110219
  Serious: Yes (Hospitalization, Other)
  Sender: FDA-Public Use
  Company Number: ES-ROXANE LABORATORIES, INC.-2010-RO-01108RO

PATIENT
  Age: 50 Year
  Sex: Male

DRUGS (2)
  1. METHOTREXATE [Suspect]
     Indication: PSORIATIC ARTHROPATHY
     Route: 048
  2. METHOTREXATE [Suspect]
     Route: 058

REACTIONS (2)
  - DYSPEPSIA [None]
  - ENCEPHALOPATHY [None]
